FAERS Safety Report 22310675 (Version 3)
Quarter: 2023Q2

REPORT INFORMATION
  Report Type: Spontaneous
  Country: US (occurrence: None)
  Receive Date: 20230511
  Receipt Date: 20230626
  Transmission Date: 20230721
  Serious: Yes (Hospitalization, Other)
  Sender: FDA-Public Use
  Company Number: 2023A103678

PATIENT
  Age: 21276 Day
  Sex: Female

DRUGS (1)
  1. SAPHNELO [Suspect]
     Active Substance: ANIFROLUMAB-FNIA
     Indication: Lupus-like syndrome
     Dosage: 300.0MG UNKNOWN
     Route: 042
     Dates: start: 20230320, end: 20230517

REACTIONS (8)
  - Muscle spasms [Unknown]
  - Myalgia [Unknown]
  - Hypoaesthesia [Unknown]
  - Swelling [Unknown]
  - Oedema [Unknown]
  - Skin swelling [Unknown]
  - Urinary retention [Unknown]
  - Inflammation [Unknown]

NARRATIVE: CASE EVENT DATE: 20230301
